FAERS Safety Report 10030116 (Version 2)
Quarter: 2014Q1

REPORT INFORMATION
  Report Type: Spontaneous
  Country: US (occurrence: US)
  Receive Date: 20140323
  Receipt Date: 20140323
  Transmission Date: 20141002
  Serious: No
  Sender: FDA-Public Use
  Company Number: US-ALLERGAN-1311253US

PATIENT
  Sex: Female

DRUGS (3)
  1. LATISSE 0.03% [Suspect]
     Indication: GROWTH OF EYELASHES
     Dosage: 2 GTT, UNK
     Route: 061
     Dates: start: 201304, end: 201307
  2. LATISSE 0.03% [Suspect]
     Dosage: 2 GTT, UNK
     Route: 061
     Dates: start: 201304, end: 201307
  3. LATISSE 0.03% [Suspect]
     Dosage: UNK
     Dates: start: 200807, end: 200904

REACTIONS (8)
  - Conjunctivitis [Recovered/Resolved]
  - Eye infection [Unknown]
  - Meibomian gland dysfunction [Recovered/Resolved]
  - Madarosis [Recovering/Resolving]
  - Madarosis [Recovering/Resolving]
  - Madarosis [Recovering/Resolving]
  - Lacrimation increased [Recovered/Resolved]
  - Blepharitis [Recovered/Resolved]
